FAERS Safety Report 7500545-1 (Version None)
Quarter: 2011Q2

REPORT INFORMATION
  Report Type: 
  Country: None (occurrence: None)
  Receive Date: 20110517
  Receipt Date: 20110505
  Transmission Date: 20111010
  Serious: Yes (Death)
  Sender: FDA-Public Use
  Company Number: ACO_24092_2011

PATIENT
  Age: 71 Year
  Sex: Male

DRUGS (3)
  1. TIZANIDINE HYDROCHLORIDE [Suspect]
     Indication: PRODUCT USED FOR UNKNOWN INDICATION
     Dosage: 24 MG, ORAL
     Route: 048
     Dates: end: 20100204
  2. CIPROFLOXACIN [Suspect]
     Indication: URINARY TRACT INFECTION
  3. RIVOTRIL (CLONAZEPAM) [Concomitant]

REACTIONS (6)
  - ORGAN FAILURE [None]
  - HYPOTONIA [None]
  - DRUG INTERACTION [None]
  - MUSCULAR WEAKNESS [None]
  - HYPOTENSION [None]
  - HYPERTENSION [None]
